FAERS Safety Report 7645376-7 (Version None)
Quarter: 2011Q3

REPORT INFORMATION
  Report Type: 
  Country: None (occurrence: None)
  Receive Date: 20110729
  Receipt Date: 20110725
  Transmission Date: 20111222
  Serious: Yes (Hospitalization)
  Sender: FDA-Public Use
  Company Number: FR-PFIZER INC-2011154214

PATIENT
  Age: 11 Month
  Sex: Male
  Weight: 9 kg

DRUGS (4)
  1. DILANTIN [Suspect]
     Dosage: 250 MG/5 ML
     Dates: start: 20110515, end: 20110516
  2. PHENOBARBITAL TAB [Suspect]
     Indication: STATUS EPILEPTICUS
     Dosage: UNK
     Dates: start: 20110515, end: 20110515
  3. DEPAKENE [Concomitant]
     Dosage: UNK
  4. KEPPRA [Concomitant]
     Dosage: UNK

REACTIONS (2)
  - INSTILLATION SITE REACTION [None]
  - COMPARTMENT SYNDROME [None]
